FAERS Safety Report 9743224 (Version 2)
Quarter: 2015Q3

REPORT INFORMATION
  Report Type: Spontaneous
  Country: US (occurrence: US)
  Receive Date: 20131210
  Receipt Date: 20150804
  Transmission Date: 20151125
  Serious: No
  Sender: FDA-Public Use
  Company Number: US-GILEAD-2009-0025090

PATIENT
  Age: 44 Year
  Sex: Male

DRUGS (5)
  1. EPZICOM [Concomitant]
     Active Substance: ABACAVIR SULFATE\LAMIVUDINE
  2. REYATAZ [Concomitant]
     Active Substance: ATAZANAVIR SULFATE
  3. NORVIR [Concomitant]
     Active Substance: RITONAVIR
  4. GABAPENTIN. [Concomitant]
     Active Substance: GABAPENTIN
  5. LETAIRIS [Suspect]
     Active Substance: AMBRISENTAN
     Indication: COR PULMONALE CHRONIC
     Route: 048
     Dates: start: 20090827

REACTIONS (2)
  - Dyspnoea [Not Recovered/Not Resolved]
  - Fatigue [Not Recovered/Not Resolved]

NARRATIVE: CASE EVENT DATE: 20090928
